FAERS Safety Report 25458799 (Version 2)
Quarter: 2025Q3

REPORT INFORMATION
  Report Type: Spontaneous
  Country: US (occurrence: US)
  Receive Date: 20250620
  Receipt Date: 20250729
  Transmission Date: 20251021
  Serious: No
  Sender: TEVA
  Company Number: US-TEVA-VS-3342875

PATIENT
  Sex: Female

DRUGS (1)
  1. IMATINIB [Suspect]
     Active Substance: IMATINIB
     Indication: Notalgia paraesthetica
     Dosage: 300MG AT NIGHT, DRUG STARTED DATE: 2 YEARS
     Route: 048

REACTIONS (8)
  - Nausea [Unknown]
  - Product odour abnormal [Unknown]
  - Diarrhoea [Unknown]
  - Rash [Unknown]
  - Feeling abnormal [Unknown]
  - Product use in unapproved indication [Unknown]
  - Muscle spasms [Unknown]
  - Brain fog [Unknown]
